FAERS Safety Report 10266651 (Version 2)
Quarter: 2014Q3

REPORT INFORMATION
  Report Type: Spontaneous
  Country: US (occurrence: US)
  Receive Date: 20140629
  Receipt Date: 20140725
  Transmission Date: 20150326
  Serious: Yes (Death, Other)
  Sender: FDA-Public Use
  Company Number: US-AMGEN-USASP2014047405

PATIENT
  Age: 98 Year
  Sex: Female
  Weight: 56.69 kg

DRUGS (1)
  1. PROLIA [Suspect]
     Active Substance: DENOSUMAB
     Indication: OSTEOPOROSIS POSTMENOPAUSAL
     Dosage: 60 MG, Q6MO
     Route: 065
     Dates: end: 20130710

REACTIONS (3)
  - Urinary tract infection [Fatal]
  - Septic shock [Fatal]
  - Sepsis [Fatal]

NARRATIVE: CASE EVENT DATE: 20140214
